FAERS Safety Report 4543278-6 (Version None)
Quarter: 2004Q4

REPORT INFORMATION
  Report Type: 
  Country: None (occurrence: None)
  Receive Date: 20041229
  Receipt Date: 19990310
  Transmission Date: 20050328
  Serious: Yes (Death)
  Sender: FDA-Public Use
  Company Number: S99-GER-00321-01

PATIENT
  Age: 69 Year
  Sex: Female

DRUGS (10)
  1. CIPRAMIL (CITALOPRAM) [Suspect]
     Indication: DEPRESSION
     Dosage: 20 MG QD PO
     Route: 048
     Dates: start: 19981217, end: 19981230
  2. ACETYLSALICYLIC ACID SRT [Concomitant]
  3. REMERGIL (MIRTAZAPINE) [Concomitant]
  4. XANEF (ENALAPRIL MALEATE) [Concomitant]
  5. GLYBURIDE [Concomitant]
  6. BIFETERAL (LACTULOSE) [Concomitant]
  7. DIPIPERON (PIPAMPERONE) [Concomitant]
  8. ZYPREXA [Concomitant]
  9. FRAXIPARINA (NADROPARIN CALCIUM) [Concomitant]
  10. EUNEPRAN (MELPERONE HYDROCHLORIDE) [Concomitant]

REACTIONS (10)
  - CEREBRAL DISORDER [None]
  - CORONARY ARTERY ATHEROSCLEROSIS [None]
  - DISEASE PROGRESSION [None]
  - DRUG INEFFECTIVE [None]
  - ECHOCARDIOGRAM ABNORMAL [None]
  - HYPERTENSIVE HEART DISEASE [None]
  - MITRAL VALVE STENOSIS [None]
  - PERICARDIAL EFFUSION [None]
  - SINUS TACHYCARDIA [None]
  - SUDDEN DEATH [None]
